FAERS Safety Report 15012475 (Version 1)
Quarter: 2018Q2

REPORT INFORMATION
  Report Type: Spontaneous
  Country: US (occurrence: US)
  Receive Date: 20180614
  Receipt Date: 20180614
  Transmission Date: 20180711
  Serious: Yes (Hospitalization)
  Sender: FDA-Public Use
  Company Number: US-JNJFOC-20180613667

PATIENT
  Age: 58 Year
  Sex: Male

DRUGS (1)
  1. INVOKANA [Suspect]
     Active Substance: CANAGLIFLOZIN
     Indication: TYPE 2 DIABETES MELLITUS
     Route: 048
     Dates: start: 20141104, end: 201601

REACTIONS (5)
  - Acute kidney injury [Recovered/Resolved]
  - Sepsis [Recovering/Resolving]
  - Gas gangrene [Unknown]
  - Cellulitis [Unknown]
  - Toe amputation [Unknown]

NARRATIVE: CASE EVENT DATE: 201505
